FAERS Safety Report 7970423-2 (Version None)
Quarter: 2011Q4

REPORT INFORMATION
  Report Type: 
  Country: None (occurrence: None)
  Receive Date: 20111212
  Receipt Date: 20111201
  Transmission Date: 20120403
  Serious: Yes (Other)
  Sender: FDA-Public Use
  Company Number: PHHY2011CA105660

PATIENT

DRUGS (4)
  1. ALISKIREN [Suspect]
     Dosage: 150 MG, UNK
  2. DIURETICS [Concomitant]
  3. ACE INHIBITOR [Concomitant]
  4. CALCIUM CHANNEL BLOCKERS [Concomitant]

REACTIONS (3)
  - BLOOD PRESSURE INCREASED [None]
  - URINE ALBUMIN/CREATININE RATIO INCREASED [None]
  - GLYCOSYLATED HAEMOGLOBIN INCREASED [None]
